FAERS Safety Report 8103007-6 (Version None)
Quarter: 2012Q1

REPORT INFORMATION
  Report Type: 
  Country: None (occurrence: None)
  Receive Date: 20120127
  Receipt Date: 20120116
  Transmission Date: 20120608
  Serious: Yes (Other)
  Sender: FDA-Public Use
  Company Number: 2012P1002782

PATIENT
  Age: 24 Year
  Sex: Male

DRUGS (1)
  1. LIDOCAINE [Suspect]
     Indication: LACERATION
     Dosage: 3 ML; X1

REACTIONS (7)
  - INCORRECT ROUTE OF DRUG ADMINISTRATION [None]
  - EYE PAIN [None]
  - INTRAOCULAR PRESSURE INCREASED [None]
  - VITREOUS FLOATERS [None]
  - BLINDNESS UNILATERAL [None]
  - MYDRIASIS [None]
  - EXOPHTHALMOS [None]
